FAERS Safety Report 7822204-8 (Version None)
Quarter: 2011Q4

REPORT INFORMATION
  Report Type: 
  Country: None (occurrence: None)
  Receive Date: 20111018
  Receipt Date: 20111013
  Transmission Date: 20120403
  Serious: Yes (Hospitalization)
  Sender: FDA-Public Use
  Company Number: PH-B.I. PHARMACEUTICALS,INC./RIDGEFIELD-2011-CS-00913RP

PATIENT
  Age: 71 Year
  Sex: Female

DRUGS (6)
  1. ATENOLOL [Concomitant]
     Indication: HYPERTENSION
  2. FUROSEMIDE [Concomitant]
     Indication: HYPERTENSION
  3. LIPITOR [Concomitant]
  4. CLONIDINE [Concomitant]
     Indication: HYPERTENSION
     Dosage: 300 MG
  5. PRADAXA [Suspect]
     Indication: CEREBROVASCULAR ACCIDENT PROPHYLAXIS
     Dosage: 220 MG
     Route: 048
     Dates: start: 20110723, end: 20111001
  6. ENALAPRIL MALEATE [Concomitant]
     Indication: HYPERTENSION

REACTIONS (2)
  - PNEUMONIA [None]
  - MYOCARDIAL INFARCTION [None]
